FAERS Safety Report 7319822-2 (Version None)
Quarter: 2011Q1

REPORT INFORMATION
  Report Type: 
  Country: None (occurrence: None)
  Receive Date: 20110228
  Receipt Date: 20101012
  Transmission Date: 20110831
  Serious: No
  Sender: FDA-Public Use
  Company Number: A0886126A

PATIENT
  Age: 49 Year
  Sex: Female

DRUGS (7)
  1. LAMICTAL [Suspect]
     Dosage: 25MG PER DAY
     Route: 048
     Dates: start: 20100927
  2. LAMICTAL [Suspect]
     Indication: DEPRESSION
     Dosage: 200MG PER DAY
     Route: 048
     Dates: start: 20090101
  3. CALCIUM [Concomitant]
  4. ZYRTEC [Concomitant]
  5. SLEEP AID [Concomitant]
  6. MULTI-VITAMIN [Concomitant]
  7. XANAX [Concomitant]

REACTIONS (3)
  - DRUG INEFFECTIVE [None]
  - ANXIETY [None]
  - FEELING ABNORMAL [None]
